FAERS Safety Report 6090252-7 (Version None)
Quarter: 2009Q1

REPORT INFORMATION
  Report Type: 
  Country: None (occurrence: None)
  Receive Date: 20090220
  Receipt Date: 20090213
  Transmission Date: 20090719
  Serious: Yes (Hospitalization, Disabling)
  Sender: FDA-Public Use
  Company Number: 2009SP003346

PATIENT
  Age: 62 Year
  Sex: Female
  Weight: 46.6 kg

DRUGS (2)
  1. TEMOZOLOMIDE [Suspect]
     Indication: BRAIN NEOPLASM
     Dosage: 105 MG;PO
     Route: 048
     Dates: start: 20081007, end: 20081118
  2. PARACETAMOL [Concomitant]

REACTIONS (1)
  - HEPATITIS [None]
